FAERS Safety Report 17250703 (Version 1)
Quarter: 2019Q4

REPORT INFORMATION
  Report Type: Spontaneous
  Country: US (occurrence: US)
  Receive Date: 20191213
  Receipt Date: 20191213
  Transmission Date: 20200122
  Serious: Yes (Hospitalization)
  Sender: FDA-Public Use
  Company Number: None

PATIENT
  Age: 64 Year
  Sex: Male
  Weight: 85.3 kg

DRUGS (2)
  1. PREDNISONE. [Suspect]
     Active Substance: PREDNISONE
     Dates: end: 20191207
  2. ABIRATERONE ACETATE. [Suspect]
     Active Substance: ABIRATERONE ACETATE
     Dates: end: 20191207

REACTIONS (4)
  - Hepatic enzyme increased [None]
  - Blood potassium decreased [None]
  - Therapy cessation [None]
  - Gallbladder obstruction [None]

NARRATIVE: CASE EVENT DATE: 20191205
